FAERS Safety Report 16763492 (Version 1)
Quarter: 2019Q3

REPORT INFORMATION
  Report Type: Report from Study
  Country: BR (occurrence: BR)
  Receive Date: 20190902
  Receipt Date: 20190902
  Transmission Date: 20191005
  Serious: Yes (Other)
  Sender: FDA-Public Use
  Company Number: BR-UCBSA-2019036064

PATIENT
  Age: 58 Year
  Sex: Female
  Weight: 60 kg

DRUGS (2)
  1. LOSARTAN. [Concomitant]
     Active Substance: LOSARTAN
     Indication: HYPERTENSION
     Dosage: 20 MILLIGRAM, ONCE DAILY (QD)
     Route: 048
     Dates: start: 201903
  2. CERTOLIZUMAB PEGOL [Suspect]
     Active Substance: CERTOLIZUMAB PEGOL
     Indication: RHEUMATOID ARTHRITIS
     Dosage: 400 MILLIGRAM, EV 4 WEEKS
     Route: 058
     Dates: start: 201902

REACTIONS (2)
  - Sinusitis [Recovered/Resolved]
  - Helicobacter infection [Recovered/Resolved]

NARRATIVE: CASE EVENT DATE: 201902
